FAERS Safety Report 9168933 (Version 2)
Quarter: 2013Q2

REPORT INFORMATION
  Report Type: Spontaneous
  Country: JP (occurrence: JP)
  Receive Date: 20130318
  Receipt Date: 20130404
  Transmission Date: 20140414
  Serious: No
  Sender: FDA-Public Use
  Company Number: JP-PFIZER INC-2013084874

PATIENT
  Sex: 0

DRUGS (2)
  1. MYCOBUTIN [Suspect]
     Route: 048
  2. ISCOTIN [Suspect]
     Route: 048

REACTIONS (1)
  - Rash [Unknown]
